FAERS Safety Report 9795370 (Version 1)
Quarter: 2014Q1

REPORT INFORMATION
  Report Type: Spontaneous
  Country: US (occurrence: US)
  Receive Date: 20140103
  Receipt Date: 20140103
  Transmission Date: 20141002
  Serious: Yes (Hospitalization, Other)
  Sender: FDA-Public Use
  Company Number: US-AMGEN-USASP2014000001

PATIENT
  Age: 52 Year
  Sex: Female

DRUGS (1)
  1. ENBREL [Suspect]
     Indication: RHEUMATOID ARTHRITIS
     Dosage: 50 MG, QWK
     Route: 065
     Dates: start: 20121210, end: 20131202

REACTIONS (6)
  - Hysterectomy [Recovered/Resolved]
  - Uterine malposition [Recovered/Resolved]
  - Menopause [Not Recovered/Not Resolved]
  - Back pain [Not Recovered/Not Resolved]
  - Smear cervix abnormal [Recovered/Resolved]
  - Influenza like illness [Not Recovered/Not Resolved]
